FAERS Safety Report 13283809 (Version 1)
Quarter: 2017Q1

REPORT INFORMATION
  Report Type: Spontaneous
  Country: US (occurrence: US)
  Receive Date: 20170301
  Receipt Date: 20170301
  Transmission Date: 20170428
  Serious: No
  Sender: FDA-Public Use
  Company Number: US-INSYS THERAPEUTICS, INC-INS201603-000143

PATIENT
  Sex: Male

DRUGS (6)
  1. SUBSYS [Suspect]
     Active Substance: FENTANYL
     Indication: OSTEOPOROSIS
  2. ENBREL [Concomitant]
     Active Substance: ETANERCEPT
     Indication: OSTEOPOROSIS
  3. SUBSYS [Suspect]
     Active Substance: FENTANYL
     Indication: BACK PAIN
  4. SUBSYS [Suspect]
     Active Substance: FENTANYL
     Indication: NECK PAIN
     Route: 060
     Dates: start: 2015
  5. SUBSYS [Suspect]
     Active Substance: FENTANYL
     Indication: PAIN IN EXTREMITY
  6. FORTEO [Concomitant]
     Active Substance: TERIPARATIDE
     Indication: OSTEOPOROSIS

REACTIONS (1)
  - Rash [Not Recovered/Not Resolved]

NARRATIVE: CASE EVENT DATE: 2016
